FAERS Safety Report 10998374 (Version 1)
Quarter: 2015Q2

REPORT INFORMATION
  Report Type: Spontaneous
  Country: ES (occurrence: None)
  Receive Date: 20150406
  Receipt Date: 20150406
  Transmission Date: 20150821
  Serious: Yes (Other)
  Sender: FDA-Public Use
  Company Number: ES-20150008

PATIENT
  Age: 62 Year
  Sex: Female

DRUGS (1)
  1. DOTAREM [Suspect]
     Active Substance: GADOTERATE MEGLUMINE
     Indication: NUCLEAR MAGNETIC RESONANCE IMAGING
     Dates: start: 20150325, end: 20150325

REACTIONS (5)
  - Erythema [None]
  - Dyspnoea [None]
  - Face oedema [None]
  - Localised oedema [None]
  - Sneezing [None]

NARRATIVE: CASE EVENT DATE: 20150325
